FAERS Safety Report 18458762 (Version 1)
Quarter: 2020Q4

REPORT INFORMATION
  Report Type: Spontaneous
  Country: US (occurrence: US)
  Receive Date: 20201103
  Receipt Date: 20201103
  Transmission Date: 20210114
  Serious: No
  Sender: FDA-Public Use
  Company Number: US-PFIZER INC-2020422109

PATIENT
  Sex: Female

DRUGS (2)
  1. RUXIENCE [Suspect]
     Active Substance: RITUXIMAB-PVVR
     Dosage: 600 MG [6 VIALS - ONE 500 MG VIAL AND ONE 100 MG VIAL WERE USED TO PREPARE THE DOSE]
  2. RUXIENCE [Suspect]
     Active Substance: RITUXIMAB-PVVR
     Dosage: 600 MG [6 VIALS - ONE 500 MG VIAL AND ONE 100 MG VIAL WERE USED TO PREPARE THE DOSE]

REACTIONS (1)
  - Liver function test increased [Unknown]
